FAERS Safety Report 10172593 (Version 2)
Quarter: 2014Q2

REPORT INFORMATION
  Report Type: Spontaneous
  Country: IN (occurrence: IN)
  Receive Date: 20140515
  Receipt Date: 20140519
  Transmission Date: 20141212
  Serious: Yes (Other)
  Sender: FDA-Public Use
  Company Number: IN-009507513-1405IND005907

PATIENT
  Sex: Female

DRUGS (6)
  1. JANUVIA [Suspect]
     Indication: DIABETES MELLITUS
     Dosage: 100 MG, BID
     Route: 048
  2. TASIGNA [Concomitant]
     Indication: LEUKAEMIA
     Dosage: UNK
  3. IMATINIB MESYLATE [Concomitant]
     Indication: LEUKAEMIA
     Dosage: UNK
  4. DYTOR [Concomitant]
     Indication: DIURETIC THERAPY
     Dosage: UNK
  5. ACTRAPID [Concomitant]
     Dosage: 22-30 UNITS
  6. LANTUS [Concomitant]
     Dosage: 16-24 UNITS

REACTIONS (3)
  - Neoplasm malignant [Not Recovered/Not Resolved]
  - Paraesthesia [Not Recovered/Not Resolved]
  - Overdose [Unknown]
